FAERS Safety Report 6744093-5 (Version None)
Quarter: 2010Q2

REPORT INFORMATION
  Report Type: 
  Country: None (occurrence: None)
  Receive Date: 20100527
  Receipt Date: 20100521
  Transmission Date: 20101027
  Serious: Yes (Life-Threatening)
  Sender: FDA-Public Use
  Company Number: A0861329A

PATIENT
  Age: 49 Year
  Sex: Female

DRUGS (9)
  1. LAPATINIB [Suspect]
     Indication: BREAST CANCER
     Dates: start: 20100322
  2. CAPECITABINE [Suspect]
     Indication: BREAST CANCER
     Dates: start: 20100322
  3. BROMOCRIPTINE [Concomitant]
     Dates: start: 20080507
  4. DIAZEPAM [Concomitant]
     Dates: start: 20090820
  5. FISH OIL [Concomitant]
     Dates: start: 20080507
  6. IBUPROFEN [Concomitant]
     Dates: start: 20080507
  7. OMEPRAZOLE [Concomitant]
     Dates: start: 20080507
  8. VITAMINS [Concomitant]
     Dates: start: 20080507
  9. VITAMIN D [Concomitant]
     Dates: start: 20080507

REACTIONS (1)
  - ANAEMIA [None]
